FAERS Safety Report 14194218 (Version 2)
Quarter: 2017Q4

REPORT INFORMATION
  Report Type: Spontaneous
  Country: US (occurrence: US)
  Receive Date: 20171116
  Receipt Date: 20171120
  Transmission Date: 20180321
  Serious: No
  Sender: FDA-Public Use
  Company Number: US-PFIZER INC-2017494668

PATIENT
  Age: 46 Year
  Sex: Female

DRUGS (4)
  1. MEVACOR [Concomitant]
     Active Substance: LOVASTATIN
     Dosage: 40 MG, 1X/DAY NIGHTLY
     Route: 048
     Dates: start: 20170801
  2. PROZAC [Concomitant]
     Active Substance: FLUOXETINE HYDROCHLORIDE
     Dosage: 40 MG, DAILY
     Route: 048
     Dates: start: 20170801
  3. GABAPENTIN. [Suspect]
     Active Substance: GABAPENTIN
     Dosage: UNK
  4. NEXIUM [Concomitant]
     Active Substance: ESOMEPRAZOLE MAGNESIUM
     Dosage: 40 MG, 1X/DAY (EVERY MORNING BEFORE BREAKFAST)
     Route: 048
     Dates: start: 20170801

REACTIONS (1)
  - Drug ineffective [Unknown]
